FAERS Safety Report 16347297 (Version 3)
Quarter: 2019Q2

REPORT INFORMATION
  Report Type: Spontaneous
  Country: US (occurrence: US)
  Receive Date: 20190523
  Receipt Date: 20190530
  Transmission Date: 20190711
  Serious: No
  Sender: FDA-Public Use
  Company Number: US-PFIZER INC-2019220599

PATIENT
  Age: 57 Year
  Sex: Female
  Weight: 66.67 kg

DRUGS (2)
  1. EUCRISA [Suspect]
     Active Substance: CRISABOROLE
     Indication: PSORIASIS
     Dosage: UNK
     Dates: start: 201704
  2. EUCRISA [Suspect]
     Active Substance: CRISABOROLE
     Indication: PALMOPLANTAR PUSTULOSIS
     Dosage: UNK UNK, 2X/DAY
     Dates: start: 20190419

REACTIONS (2)
  - Drug ineffective for unapproved indication [Not Recovered/Not Resolved]
  - Off label use [Unknown]

NARRATIVE: CASE EVENT DATE: 20190520
